FAERS Safety Report 9495401 (Version 1)
Quarter: 2013Q3

REPORT INFORMATION
  Report Type: Spontaneous
  Country: CA (occurrence: CA)
  Receive Date: 20130903
  Receipt Date: 20130903
  Transmission Date: 20140515
  Serious: Yes (Hospitalization)
  Sender: FDA-Public Use
  Company Number: CA-BAYER-2013-101675

PATIENT
  Age: 75 Year
  Sex: Female

DRUGS (2)
  1. ASPIRIN [Suspect]
     Dosage: 80 MG, QD
     Route: 048
  2. AMIODARONE [Suspect]

REACTIONS (3)
  - Hepatotoxicity [None]
  - Melaena [None]
  - Anaemia [None]
